FAERS Safety Report 5739881-8 (Version None)
Quarter: 2008Q2

REPORT INFORMATION
  Report Type: 
  Country: None (occurrence: None)
  Receive Date: 20080513
  Receipt Date: 20080513
  Transmission Date: 20081010
  Serious: Yes (Life-Threatening, Hospitalization)
  Sender: FDA-Public Use
  Company Number: None

PATIENT
  Age: 13 Year
  Sex: Male
  Weight: 68.9467 kg

DRUGS (1)
  1. MINOCYCLINE HCL [Suspect]
     Indication: ACNE
     Dosage: 1 BID PO
     Route: 048
     Dates: start: 20080111, end: 20080215

REACTIONS (3)
  - ACUTE HEPATIC FAILURE [None]
  - ERYTHEMA MULTIFORME [None]
  - PNEUMONIA MYCOPLASMAL [None]
